FAERS Safety Report 6419513-6 (Version None)
Quarter: 2009Q4

REPORT INFORMATION
  Report Type: 
  Country: None (occurrence: None)
  Receive Date: 20091029
  Receipt Date: 20091019
  Transmission Date: 20100525
  Serious: Yes (Death)
  Sender: FDA-Public Use
  Company Number: US-PFIZER INC-2007068903

PATIENT
  Sex: Male
  Weight: 78 kg

DRUGS (5)
  1. MARAVIROC [Suspect]
     Dosage: 150 MG, 2X/DAY
     Route: 048
     Dates: start: 20070712, end: 20070821
  2. TRIZIVIR [Concomitant]
     Dates: start: 20040120, end: 20070821
  3. FOSAMPRENAVIR [Concomitant]
     Dates: start: 20040120, end: 20070821
  4. LAMICTAL [Concomitant]
     Dates: end: 20070821
  5. ATIVAN [Concomitant]
     Dates: start: 20070808, end: 20070821

REACTIONS (1)
  - DEATH [None]
